FAERS Safety Report 15719660 (Version 2)
Quarter: 2018Q4

REPORT INFORMATION
  Report Type: Spontaneous
  Country: US (occurrence: US)
  Receive Date: 20181213
  Receipt Date: 20181224
  Transmission Date: 20190205
  Serious: Yes (Other)
  Sender: FDA-Public Use
  Company Number: US-TEVA-2018-US-986410

PATIENT
  Age: 7 Year
  Sex: Female

DRUGS (22)
  1. CYTOSINE ARABINOSIDE [Suspect]
     Active Substance: CYTARABINE
     Indication: ACUTE LYMPHOCYTIC LEUKAEMIA
     Route: 037
  2. ADRENOCORTICOTROPIC HORMONE [Suspect]
     Active Substance: CORTICOTROPIN
     Indication: PARANEOPLASTIC SYNDROME
     Dosage: 75 IU/M2 TWICE A WEEK
     Route: 065
  3. RITUXIMAB. [Concomitant]
     Active Substance: RITUXIMAB
     Route: 065
  4. ADRENOCORTICOTROPIC HORMONE [Suspect]
     Active Substance: CORTICOTROPIN
     Dosage: 75 IU/M2 ONCE A DAY FOR 3 WEEKS
     Route: 065
  5. ADRENOCORTICOTROPIC HORMONE [Suspect]
     Active Substance: CORTICOTROPIN
     Dosage: 55 IU/M2 ONCE A DAY X 1 WEEEK
     Route: 065
  6. ADRENOCORTICOTROPIC HORMONE [Suspect]
     Active Substance: CORTICOTROPIN
     Dosage: 15 IU/M2 ONCE A DAY X 1 WEEEK
     Route: 065
  7. ADRENOCORTICOTROPIC HORMONE [Suspect]
     Active Substance: CORTICOTROPIN
     Dosage: 5 IU/M2 ONCE A DAY X 1 WEEEK
     Route: 065
  8. VITAMIN D [Concomitant]
     Active Substance: CHOLECALCIFEROL
     Indication: VITAMIN D DEFICIENCY
     Route: 065
  9. IMMUNE GLOBULIN NOS [Concomitant]
     Active Substance: IMMUNE GLOBULIN NOS
     Dosage: MONTHLY 1 G/KG/DAY
     Route: 042
  10. VINCRISTINE [Concomitant]
     Active Substance: VINCRISTINE
     Indication: ACUTE LYMPHOCYTIC LEUKAEMIA
     Dosage: DAY 15 AND DAY 22
     Route: 042
  11. METHOTREXATE. [Concomitant]
     Active Substance: METHOTREXATE
     Indication: ACUTE LYMPHOCYTIC LEUKAEMIA
     Dosage: DAY 29
     Route: 037
  12. PREDNISONE. [Concomitant]
     Active Substance: PREDNISONE
     Indication: ACUTE LYMPHOCYTIC LEUKAEMIA
     Dosage: DAYS 15-29
     Route: 048
  13. ADRENOCORTICOTROPIC HORMONE [Suspect]
     Active Substance: CORTICOTROPIN
     Dosage: 35 IU/M2 ONCE A DAY X 1 WEEEK
     Route: 065
  14. ADRENOCORTICOTROPIC HORMONE [Suspect]
     Active Substance: CORTICOTROPIN
     Dosage: 25 IU/M2 ONCE A DAY X 1 WEEEK
     Route: 065
  15. ADRENOCORTICOTROPIC HORMONE [Suspect]
     Active Substance: CORTICOTROPIN
     Dosage: 10 IU/M2 ONCE A DAY X 1 WEEEK
     Route: 065
  16. DEXAMETHASONE. [Concomitant]
     Active Substance: DEXAMETHASONE
     Dosage: 3 DAYS/MONTH
     Route: 048
  17. ADRENOCORTICOTROPIC HORMONE [Suspect]
     Active Substance: CORTICOTROPIN
     Dosage: 65 IU/M2 ONCE A DAY FOR 1 WEEK
     Route: 065
  18. ADRENOCORTICOTROPIC HORMONE [Suspect]
     Active Substance: CORTICOTROPIN
     Dosage: 45 IU/M2 ONCE A DAY X 1 WEEEK
     Route: 065
  19. ADRENOCORTICOTROPIC HORMONE [Suspect]
     Active Substance: CORTICOTROPIN
     Indication: ACUTE LYMPHOCYTIC LEUKAEMIA
     Dosage: 75 IU/M2 DAILY FOR 4 WEEKS
     Route: 065
  20. VINCRISTINE [Concomitant]
     Active Substance: VINCRISTINE
     Indication: ACUTE LYMPHOCYTIC LEUKAEMIA
     Dosage: DAYS 1 AND 8
     Route: 042
  21. METHOTREXATE. [Concomitant]
     Active Substance: METHOTREXATE
     Indication: ACUTE LYMPHOCYTIC LEUKAEMIA
     Dosage: DAYS 8
     Route: 037
  22. PREDNISONE. [Concomitant]
     Active Substance: PREDNISONE
     Indication: ACUTE LYMPHOCYTIC LEUKAEMIA
     Dosage: DAYS 1-14
     Route: 048

REACTIONS (3)
  - Mental status changes [Recovered/Resolved]
  - Toxicity to various agents [Recovered/Resolved]
  - Ataxia [Recovered/Resolved]
